FAERS Safety Report 11349321 (Version 1)
Quarter: 2015Q3

REPORT INFORMATION
  Report Type: Spontaneous
  Country: NZ (occurrence: None)
  Receive Date: 20150805
  Receipt Date: 20150805
  Transmission Date: 20151125
  Serious: Yes (Other)
  Sender: FDA-Public Use
  Company Number: NZ-2015VAL000502

PATIENT
  Age: 71 Year
  Sex: Male

DRUGS (5)
  1. CANDESARTAN (CANDESARTAN) [Concomitant]
     Active Substance: CANDESARTAN
  2. SIMVASTATIN (SIMVASTATIN) [Concomitant]
     Active Substance: SIMVASTATIN
  3. ASPIRIN (ACETYLSALICYLIC ACID) [Concomitant]
     Active Substance: ASPIRIN
  4. ISMN GENERICON (ISOSORBIDE MONONITRATE) [Concomitant]
  5. METOPROLOL TARTRATE (METOPROLOL TARTRATE) UNKNOWN [Suspect]
     Active Substance: METOPROLOL TARTRATE
     Indication: PRODUCT USED FOR UNKNOWN INDICATION

REACTIONS (4)
  - Blood alkaline phosphatase increased [None]
  - Metastases to lung [None]
  - Metastatic malignant melanoma [None]
  - Neck mass [None]

NARRATIVE: CASE EVENT DATE: 201505
